FAERS Safety Report 11031878 (Version 1)
Quarter: 2015Q2

REPORT INFORMATION
  Report Type: Spontaneous
  Country: US (occurrence: None)
  Receive Date: 20150414
  Receipt Date: 20150414
  Transmission Date: 20150821
  Serious: No
  Sender: FDA-Public Use
  Company Number: None

PATIENT
  Age: 49 Year
  Sex: Female
  Weight: 131.54 kg

DRUGS (20)
  1. CHONDROITIN, GLUCOSAMINE [Concomitant]
     Active Substance: CHONDROITIN SULFATE (BOVINE)\GLUCOSAMINE SULFATE
  2. FISH OIL [Concomitant]
     Active Substance: FISH OIL
  3. ONETOUCH LANCETS [Concomitant]
  4. ACCU-CHEK COMFORT CURVE [Concomitant]
  5. ONETOUCH ULTRA BLUE [Concomitant]
  6. ACCU-CHEK SOFTCLIX LANCETS [Concomitant]
  7. JANUMET [Concomitant]
     Active Substance: METFORMIN HYDROCHLORIDE\SITAGLIPTIN PHOSPHATE
  8. BLOOD PRESSURE CUFF [Concomitant]
  9. BD ULTRA-FINE LANCETS [Concomitant]
  10. BYDUREON [Concomitant]
     Active Substance: EXENATIDE
  11. AMLODIPINE BESYLATE. [Concomitant]
     Active Substance: AMLODIPINE BESYLATE
  12. AMITRIPTYLINE HCL [Concomitant]
     Active Substance: AMITRIPTYLINE
  13. BIOTIN [Concomitant]
     Active Substance: BIOTIN
  14. ACCU-CHEK COMPACT [Concomitant]
  15. GLIMEPIRIDE. [Concomitant]
     Active Substance: GLIMEPIRIDE
  16. METFORMIN HCL [Concomitant]
     Active Substance: METFORMIN HYDROCHLORIDE
  17. LOSARTAN POTASSIUM. [Concomitant]
     Active Substance: LOSARTAN POTASSIUM
  18. BYDUREON [Suspect]
     Active Substance: EXENATIDE
     Indication: DIABETES MELLITUS
     Dosage: 2 MG #4 WEEKLY INJECTION
     Dates: start: 20150105, end: 20150413
  19. VITAMIN B COMPLEX [Concomitant]
     Active Substance: CYANOCOBALAMIN\DEXPANTHENOL\NIACINAMIDE\PYRIDOXINE HYDROCHLORIDE\RIBOFLAVIN 5^-PHOSPHATE SODIUM\THIAMINE HYDROCHLORIDE\VITAMIN B COMPLEX
  20. ATORVASTATIN CALCIUM. [Concomitant]
     Active Substance: ATORVASTATIN CALCIUM

REACTIONS (1)
  - Injection site mass [None]

NARRATIVE: CASE EVENT DATE: 201502
